FAERS Safety Report 19963661 (Version 1)
Quarter: 2021Q4

REPORT INFORMATION
  Report Type: Spontaneous
  Country: US (occurrence: US)
  Receive Date: 20211015
  Receipt Date: 20211015
  Transmission Date: 20220303
  Serious: No
  Sender: FDA-Public Use
  Company Number: None

PATIENT
  Age: 17 Year
  Sex: Female
  Weight: 66.68 kg

DRUGS (1)
  1. NEXPLANON [Suspect]
     Active Substance: ETONOGESTREL

REACTIONS (6)
  - Menstruation irregular [None]
  - Dysmenorrhoea [None]
  - Loss of consciousness [None]
  - Coital bleeding [None]
  - Dyspareunia [None]
  - Heavy menstrual bleeding [None]

NARRATIVE: CASE EVENT DATE: 20200314
